FAERS Safety Report 21005868 (Version 1)
Quarter: 2022Q3

REPORT INFORMATION
  Report Type: Spontaneous
  Country: SE (occurrence: SE)
  Receive Date: 20220624
  Receipt Date: 20220624
  Transmission Date: 20221027
  Serious: Yes (Life-Threatening)
  Sender: FDA-Public Use
  Company Number: None

PATIENT
  Age: 72 Year
  Sex: Male

DRUGS (1)
  1. HYRIMOZ [Suspect]
     Active Substance: ADALIMUMAB-ADAZ
     Indication: Crohn^s disease
     Dosage: DOSERING: 2 INJEKTIONER/M?NAD
     Route: 065
     Dates: start: 20210805, end: 20220331

REACTIONS (19)
  - Condition aggravated [Recovered/Resolved]
  - Eye discharge [Recovered/Resolved]
  - Heart rate increased [Recovered/Resolved]
  - Formication [Recovered/Resolved]
  - Sleep disorder [Recovered/Resolved]
  - Epilepsy [Recovered/Resolved]
  - Paraesthesia [Recovered/Resolved]
  - Dyspepsia [Recovered/Resolved]
  - Dyspnoea [Recovered/Resolved]
  - Mood swings [Recovered/Resolved]
  - Oedema [Recovered/Resolved]
  - Muscle spasms [Recovered/Resolved]
  - Visual impairment [Recovered/Resolved]
  - Cough [Recovered/Resolved]
  - Anxiety [Recovered/Resolved]
  - Hyperhidrosis [Recovered/Resolved]
  - Skin haemorrhage [Recovered/Resolved]
  - Depression [Recovered/Resolved]
  - Eye inflammation [Recovered/Resolved]

NARRATIVE: CASE EVENT DATE: 20220301
